FAERS Safety Report 16475509 (Version 1)
Quarter: 2019Q2

REPORT INFORMATION
  Report Type: Spontaneous
  Country: US (occurrence: US)
  Receive Date: 20190625
  Receipt Date: 20190625
  Transmission Date: 20190711
  Serious: No
  Sender: FDA-Public Use
  Company Number: US-NEPHRON STERILE COMPOUNDING CENTER-2069568

PATIENT

DRUGS (1)
  1. SUCCINYLCHOLINE CHLORIDE. [Suspect]
     Active Substance: SUCCINYLCHOLINE CHLORIDE
     Route: 040

REACTIONS (1)
  - Drug ineffective [Unknown]
